FAERS Safety Report 5107558-8 (Version None)
Quarter: 2006Q3

REPORT INFORMATION
  Report Type: 
  Country: None (occurrence: None)
  Receive Date: 20060913
  Receipt Date: 20060913
  Transmission Date: 20061208
  Serious: Yes (Life-Threatening, Hospitalization)
  Sender: FDA-Public Use
  Company Number: None

PATIENT
  Age: 50 Year
  Sex: Female
  Weight: 80 kg

DRUGS (2)
  1. DROTRECOGIN ALFA -XIGRIS- LILLY [Suspect]
     Indication: ORGAN FAILURE
     Dosage: 24 MCG/KG/HOUR CONTINUOUS IV
     Route: 042
     Dates: start: 20060822, end: 20060826
  2. DROTRECOGIN ALFA -XIGRIS- LILLY [Suspect]
     Indication: SEPSIS SYNDROME
     Dosage: 24 MCG/KG/HOUR CONTINUOUS IV
     Route: 042
     Dates: start: 20060822, end: 20060826

REACTIONS (4)
  - CEREBRAL ISCHAEMIA [None]
  - INTRAVENTRICULAR HAEMORRHAGE [None]
  - SUBARACHNOID HAEMORRHAGE [None]
  - SUBDURAL HAEMORRHAGE [None]
